FAERS Safety Report 8543853-8 (Version None)
Quarter: 2012Q3

REPORT INFORMATION
  Report Type: 
  Country: None (occurrence: None)
  Receive Date: 20120727
  Receipt Date: 20120723
  Transmission Date: 20120928
  Serious: Yes (Other)
  Sender: FDA-Public Use
  Company Number: PHHY2012CA064249

PATIENT
  Sex: Female
  Weight: 55 kg

DRUGS (4)
  1. CALCIUM [Concomitant]
     Dosage: 500 MG, BID
     Dates: start: 19900101
  2. ACTONEL [Concomitant]
     Dosage: UNK UKN, UNK
     Dates: start: 20050101
  3. VITAMIN D [Concomitant]
     Dosage: 400 MG, BID
     Dates: start: 19900101
  4. ZOLEDRONOC ACID [Suspect]
     Indication: OSTEOPOROSIS
     Dosage: 5 MG/100 ML/YEAR
     Route: 042

REACTIONS (2)
  - DRUG INTOLERANCE [None]
  - RENAL FAILURE CHRONIC [None]
